FAERS Safety Report 10952686 (Version 2)
Quarter: 2015Q2

REPORT INFORMATION
  Report Type: Spontaneous
  Country: JP (occurrence: JP)
  Receive Date: 20150325
  Receipt Date: 20150528
  Transmission Date: 20150821
  Serious: Yes (Hospitalization)
  Sender: FDA-Public Use
  Company Number: JP-ASTRAZENECA-2015SE27876

PATIENT
  Age: 92 Year
  Sex: Male

DRUGS (11)
  1. CALONAL [Concomitant]
     Active Substance: ACETAMINOPHEN
     Route: 048
  2. MEROPEN [Suspect]
     Active Substance: MEROPENEM
     Indication: PNEUMONIA ASPIRATION
     Route: 041
     Dates: start: 20150228, end: 20150305
  3. PICILLIBACTA [Concomitant]
     Active Substance: AMPICILLIN SODIUM\SULBACTAM SODIUM
     Route: 041
  4. ISOTONIC SODIUM CHLORIDE SOLUTION KIT [Concomitant]
     Route: 041
  5. SOLDEM 1 [Concomitant]
     Active Substance: DEXTROSE\SODIUM CHLORIDE\SODIUM LACTATE
     Route: 041
  6. INTRALIPOS [Concomitant]
     Active Substance: SOYBEAN OIL
     Route: 041
  7. SOLDEM 3A [Concomitant]
     Active Substance: CARBOHYDRATES\POTASSIUM CHLORIDE\SODIUM CHLORIDE\SODIUM LACTATE
     Route: 041
  8. MEROPEN [Suspect]
     Active Substance: MEROPENEM
     Indication: PNEUMONIA ASPIRATION
     Route: 041
     Dates: start: 20150203, end: 20150205
  9. BFLUID [Concomitant]
     Active Substance: AMINO ACIDS\DEXTROSE\ELECTROLYTES NOS\VITAMINS
     Route: 041
  10. JUSO [Concomitant]
  11. SOLULACT [Concomitant]
     Route: 041

REACTIONS (1)
  - Hepatic function abnormal [Recovering/Resolving]

NARRATIVE: CASE EVENT DATE: 20150205
